FAERS Safety Report 7115788-9 (Version None)
Quarter: 2010Q4

REPORT INFORMATION
  Report Type: 
  Country: None (occurrence: None)
  Receive Date: 20101122
  Receipt Date: 20101008
  Transmission Date: 20110411
  Serious: Yes (Death, Other)
  Sender: FDA-Public Use
  Company Number: US-BAXTER-2010BH006194

PATIENT
  Age: 73 Year
  Sex: Male
  Weight: 78 kg

DRUGS (58)
  1. HEPARIN SODIUM INJECTION [Suspect]
     Indication: CATHETERISATION CARDIAC
     Route: 040
     Dates: start: 20071214
  2. HEPARIN SODIUM INJECTION [Suspect]
     Indication: ANGIOGRAM
     Route: 040
     Dates: start: 20071214
  3. HEPARIN SODIUM INJECTION [Suspect]
     Indication: ANTICOAGULANT THERAPY
     Route: 040
     Dates: start: 20071214
  4. HEPARIN SODIUM INJECTION [Suspect]
     Indication: INTRAVENOUS CATHETER MANAGEMENT
     Route: 040
     Dates: start: 20071214
  5. HEPARIN SODIUM INJECTION [Suspect]
     Route: 041
     Dates: start: 20071214
  6. HEPARIN SODIUM INJECTION [Suspect]
     Route: 041
     Dates: start: 20071214
  7. HEPARIN SODIUM INJECTION [Suspect]
     Route: 041
     Dates: start: 20071214
  8. HEPARIN SODIUM INJECTION [Suspect]
     Route: 041
     Dates: start: 20071214
  9. HEPARIN SODIUM INJECTION [Suspect]
     Route: 041
     Dates: start: 20071222, end: 20071223
  10. HEPARIN SODIUM INJECTION [Suspect]
     Route: 041
     Dates: start: 20071222, end: 20071223
  11. HEPARIN SODIUM INJECTION [Suspect]
     Route: 041
     Dates: start: 20071222, end: 20071223
  12. HEPARIN SODIUM INJECTION [Suspect]
     Route: 041
     Dates: start: 20071222, end: 20071223
  13. HEPARIN SODIUM INJECTION [Suspect]
     Route: 042
     Dates: start: 20071222, end: 20071222
  14. HEPARIN SODIUM INJECTION [Suspect]
     Route: 042
     Dates: start: 20071222, end: 20071222
  15. HEPARIN SODIUM INJECTION [Suspect]
     Route: 042
     Dates: start: 20071222, end: 20071222
  16. HEPARIN SODIUM INJECTION [Suspect]
     Route: 042
     Dates: start: 20071222, end: 20071222
  17. HEPARIN SODIUM INJECTION [Suspect]
     Route: 042
     Dates: start: 20071222, end: 20071222
  18. HEPARIN SODIUM INJECTION [Suspect]
     Route: 042
     Dates: start: 20071222, end: 20071222
  19. HEPARIN SODIUM INJECTION [Suspect]
     Route: 042
     Dates: start: 20071222, end: 20071222
  20. HEPARIN SODIUM INJECTION [Suspect]
     Route: 042
     Dates: start: 20071222, end: 20071222
  21. HEPARIN SODIUM INJECTION [Suspect]
     Route: 042
     Dates: start: 20071222, end: 20071222
  22. HEPARIN SODIUM INJECTION [Suspect]
     Route: 042
     Dates: start: 20071222, end: 20071222
  23. HEPARIN SODIUM INJECTION [Suspect]
     Route: 042
     Dates: start: 20071222, end: 20071222
  24. HEPARIN SODIUM INJECTION [Suspect]
     Route: 042
     Dates: start: 20071222, end: 20071222
  25. HEPARIN SODIUM INJECTION [Suspect]
     Route: 042
     Dates: start: 20080107, end: 20080107
  26. HEPARIN SODIUM INJECTION [Suspect]
     Route: 042
     Dates: start: 20080107, end: 20080107
  27. HEPARIN SODIUM INJECTION [Suspect]
     Route: 042
     Dates: start: 20080107, end: 20080107
  28. HEPARIN SODIUM INJECTION [Suspect]
     Route: 042
     Dates: start: 20080107, end: 20080107
  29. HEPARIN SODIUM INJECTION [Suspect]
     Route: 042
     Dates: start: 20080107, end: 20080107
  30. HEPARIN SODIUM INJECTION [Suspect]
     Route: 042
     Dates: start: 20080107, end: 20080107
  31. HEPARIN SODIUM INJECTION [Suspect]
     Route: 042
     Dates: start: 20080107, end: 20080107
  32. HEPARIN SODIUM INJECTION [Suspect]
     Route: 042
     Dates: start: 20080107, end: 20080107
  33. HEPARIN SODIUM INJECTION [Suspect]
     Route: 041
     Dates: start: 20071223
  34. HEPARIN SODIUM INJECTION [Suspect]
     Route: 041
     Dates: start: 20071223
  35. HEPARIN SODIUM INJECTION [Suspect]
     Route: 041
     Dates: start: 20071223
  36. HEPARIN SODIUM INJECTION [Suspect]
     Route: 041
     Dates: start: 20071223
  37. GLYBURIDE [Concomitant]
     Indication: PRODUCT USED FOR UNKNOWN INDICATION
     Route: 048
  38. HYDROCHLOROTHIAZIDE [Concomitant]
     Indication: PRODUCT USED FOR UNKNOWN INDICATION
     Route: 065
  39. LIPITOR [Concomitant]
     Indication: PRODUCT USED FOR UNKNOWN INDICATION
     Route: 065
  40. LISINOPRIL [Concomitant]
     Indication: PRODUCT USED FOR UNKNOWN INDICATION
     Route: 065
  41. LOPID [Concomitant]
     Indication: PRODUCT USED FOR UNKNOWN INDICATION
     Route: 065
  42. TOPROL-XL [Concomitant]
     Indication: PRODUCT USED FOR UNKNOWN INDICATION
     Route: 065
  43. ZETIA [Concomitant]
     Indication: PRODUCT USED FOR UNKNOWN INDICATION
     Route: 065
  44. ASPIRIN [Concomitant]
     Indication: PRODUCT USED FOR UNKNOWN INDICATION
     Route: 065
  45. NITROGLYCERIN [Concomitant]
     Indication: PRODUCT USED FOR UNKNOWN INDICATION
     Route: 060
  46. HUMULIN 70/30 [Concomitant]
     Indication: PRODUCT USED FOR UNKNOWN INDICATION
     Route: 065
  47. PLAVIX [Concomitant]
     Indication: PRODUCT USED FOR UNKNOWN INDICATION
     Route: 048
  48. DIGOXIN [Concomitant]
     Indication: PRODUCT USED FOR UNKNOWN INDICATION
     Route: 065
  49. NORCURON [Concomitant]
     Indication: PRODUCT USED FOR UNKNOWN INDICATION
     Route: 042
  50. PANTOPRAZOLE [Concomitant]
     Indication: PRODUCT USED FOR UNKNOWN INDICATION
     Route: 065
  51. ALDACTONE [Concomitant]
     Indication: PRODUCT USED FOR UNKNOWN INDICATION
     Route: 065
  52. COLACE [Concomitant]
     Indication: PRODUCT USED FOR UNKNOWN INDICATION
     Route: 065
  53. COREG [Concomitant]
     Indication: PRODUCT USED FOR UNKNOWN INDICATION
     Route: 065
  54. CIPROFLOXACIN [Concomitant]
     Indication: PRODUCT USED FOR UNKNOWN INDICATION
     Route: 065
  55. DUONEB [Concomitant]
     Indication: PRODUCT USED FOR UNKNOWN INDICATION
     Route: 065
  56. LASIX [Concomitant]
     Indication: PRODUCT USED FOR UNKNOWN INDICATION
     Route: 065
  57. MORPHINE [Concomitant]
     Indication: PRODUCT USED FOR UNKNOWN INDICATION
     Route: 065
  58. HALDOL [Concomitant]
     Indication: PRODUCT USED FOR UNKNOWN INDICATION
     Route: 042

REACTIONS (20)
  - ASCITES [None]
  - ATRIAL FIBRILLATION [None]
  - CARDIAC ARREST [None]
  - CARDIOGENIC SHOCK [None]
  - CONFUSIONAL STATE [None]
  - CORONARY ARTERY DISEASE [None]
  - DEEP VEIN THROMBOSIS [None]
  - DEVICE RELATED SEPSIS [None]
  - GANGRENE [None]
  - HAEMODYNAMIC INSTABILITY [None]
  - HEART VALVE INCOMPETENCE [None]
  - HEPARIN-INDUCED THROMBOCYTOPENIA [None]
  - HYPOTENSION [None]
  - ISCHAEMIC CARDIOMYOPATHY [None]
  - LIVER FUNCTION TEST ABNORMAL [None]
  - PERIPHERAL ISCHAEMIA [None]
  - PYREXIA [None]
  - RENAL FAILURE [None]
  - RESPIRATORY FAILURE [None]
  - SPUTUM CULTURE POSITIVE [None]
